FAERS Safety Report 9263171 (Version 2)
Quarter: 2014Q2

REPORT INFORMATION
  Report Type: Spontaneous
  Country: DE (occurrence: None)
  Receive Date: 20130425
  Receipt Date: 20140605
  Transmission Date: 20141212
  Serious: Yes (Hospitalization, Other)
  Sender: FDA-Public Use
  Company Number: 1304-538

PATIENT
  Age: 82 Year
  Sex: Female

DRUGS (3)
  1. EYLEA (AFLIBERCEPT) (INJECTION) (AFLIBERCEPT) [Suspect]
     Indication: AGE-RELATED MACULAR DEGENERATION
     Dosage: Q6WEEKS, INTRAOCULAR
     Route: 031
     Dates: start: 20130415, end: 20131013
  2. BETADINE [Concomitant]
  3. CHLORHEXIDINE (CHLORHEXIDINE) [Concomitant]

REACTIONS (12)
  - Eye pain [None]
  - Visual acuity reduced [None]
  - Ocular hyperaemia [None]
  - Wrong technique in drug usage process [None]
  - Vascular injury [None]
  - Conjunctival haemorrhage [None]
  - Cardiac disorder [None]
  - Application site pain [None]
  - Visual acuity reduced [None]
  - Sluggishness [None]
  - Fatigue [None]
  - Inappropriate schedule of drug administration [None]
